FAERS Safety Report 12336830 (Version 1)
Quarter: 2016Q2

REPORT INFORMATION
  Report Type: Spontaneous
  Country: US (occurrence: US)
  Receive Date: 20160505
  Receipt Date: 20160505
  Transmission Date: 20160815
  Serious: Yes (Other)
  Sender: FDA-Public Use
  Company Number: US-AMGEN-USASP2016054475

PATIENT
  Age: 60 Year
  Sex: Female

DRUGS (3)
  1. PANITUMUMAB [Suspect]
     Active Substance: PANITUMUMAB
     Indication: NON-SMALL CELL LUNG CANCER STAGE IV
     Dosage: 6 MG/KG, EVERY 2 WEEKS
     Route: 065
  2. AFATINIB [Concomitant]
     Active Substance: AFATINIB
     Dosage: 20 MG, 3 TIMES WEEKLY
  3. AFATINIB [Concomitant]
     Active Substance: AFATINIB
     Indication: NON-SMALL CELL LUNG CANCER STAGE IV
     Dosage: 40 MG, QD

REACTIONS (3)
  - Non-small cell lung cancer [Unknown]
  - Rash [Unknown]
  - Drug effect incomplete [Unknown]
